FAERS Safety Report 13317610 (Version 2)
Quarter: 2017Q1

REPORT INFORMATION
  Report Type: Spontaneous
  Country: US (occurrence: US)
  Receive Date: 20170310
  Receipt Date: 20170323
  Transmission Date: 20170428
  Serious: Yes (Other)
  Sender: FDA-Public Use
  Company Number: US-RECKITT BENCKISER HEALTHCARE INT LIMITED-RB-82671-2017

PATIENT
  Sex: Male

DRUGS (1)
  1. MUCINEX MAXIMUM STRENGTH [Suspect]
     Active Substance: GUAIFENESIN
     Indication: PRODUCT USED FOR UNKNOWN INDICATION
     Dosage: UNK
     Route: 065

REACTIONS (4)
  - Unevaluable event [Recovered/Resolved]
  - Wrong technique in product usage process [Recovered/Resolved]
  - Tongue discolouration [Recovered/Resolved]
  - Confusional state [Recovered/Resolved]
